FAERS Safety Report 16934456 (Version 2)
Quarter: 2019Q4

REPORT INFORMATION
  Report Type: Spontaneous
  Country: KR (occurrence: KR)
  Receive Date: 20191018
  Receipt Date: 20191213
  Transmission Date: 20200122
  Serious: Yes (Death, Hospitalization, Disabling, Other)
  Sender: FDA-Public Use
  Company Number: KR-SA-2019SA284408

PATIENT
  Sex: Male

DRUGS (2)
  1. LANTUS [Suspect]
     Active Substance: INSULIN GLARGINE
     Indication: DIABETES MELLITUS
     Dosage: UNK
     Route: 058
  2. APIDRA [Suspect]
     Active Substance: INSULIN GLULISINE
     Indication: DIABETES MELLITUS
     Dosage: UNK
     Route: 058

REACTIONS (8)
  - Intercepted medication error [Unknown]
  - Joint effusion [Unknown]
  - Gastric haemorrhage [Unknown]
  - Death [Fatal]
  - Arthralgia [Unknown]
  - Renal failure [Unknown]
  - Mobility decreased [Unknown]
  - Product storage error [Unknown]

NARRATIVE: CASE EVENT DATE: 201910
